FAERS Safety Report 5004503-0 (Version None)
Quarter: 2006Q2

REPORT INFORMATION
  Report Type: 
  Country: None (occurrence: None)
  Receive Date: 20060517
  Receipt Date: 20060515
  Transmission Date: 20061013
  Serious: Yes (Other)
  Sender: FDA-Public Use
  Company Number: US-GLAXOSMITHKLINE-A0605559A

PATIENT
  Age: 49 Year
  Sex: Male

DRUGS (1)
  1. NICORETTE [Suspect]
     Indication: SMOKING CESSATION THERAPY
     Dosage: 2MG UNKNOWN
     Route: 002

REACTIONS (4)
  - HYPOTHYROIDISM [None]
  - INTENTIONAL DRUG MISUSE [None]
  - IRRITABILITY [None]
  - TREATMENT NONCOMPLIANCE [None]
